FAERS Safety Report 9029184 (Version 1)
Quarter: 2013Q1

REPORT INFORMATION
  Report Type: Spontaneous
  Country: US (occurrence: US)
  Receive Date: 20130125
  Receipt Date: 20130125
  Transmission Date: 20140127
  Serious: Yes (Other)
  Sender: FDA-Public Use
  Company Number: US-JNJFOC-20130111439

PATIENT
  Sex: Female
  Weight: 71.67 kg

DRUGS (4)
  1. TOPAMAX [Suspect]
     Indication: WEIGHT DECREASED
     Route: 048
     Dates: end: 2011
  2. TOPAMAX [Suspect]
     Indication: WEIGHT DECREASED
     Route: 048
  3. TOPAMAX [Suspect]
     Indication: WEIGHT DECREASED
     Route: 048
     Dates: start: 2009
  4. TOPIRAMATE [Suspect]
     Indication: WEIGHT DECREASED
     Route: 048
     Dates: start: 2011

REACTIONS (5)
  - Infection parasitic [Not Recovered/Not Resolved]
  - Memory impairment [Not Recovered/Not Resolved]
  - Weight decreased [Not Recovered/Not Resolved]
  - Stress [Not Recovered/Not Resolved]
  - Skin disorder [Not Recovered/Not Resolved]
